FAERS Safety Report 20215507 (Version 1)
Quarter: 2021Q4

REPORT INFORMATION
  Report Type: Report from Study
  Country: US (occurrence: US)
  Receive Date: 20211222
  Receipt Date: 20211222
  Transmission Date: 20220303
  Serious: Yes (Death)
  Sender: FDA-Public Use
  Company Number: US-QED THERAPEUTICS-QED-2021-000089

PATIENT
  Age: 89 Year
  Sex: Female

DRUGS (1)
  1. TRUSELTIQ [Suspect]
     Active Substance: INFIGRATINIB
     Indication: Cholangiocarcinoma
     Dosage: 75 MILLIGRAM (HALF CAPSULE), QD (WITHOUT FOOD)
     Route: 048
     Dates: start: 20210724

REACTIONS (4)
  - Rash pruritic [Recovered/Resolved]
  - Wrong technique in product usage process [Unknown]
  - Prescribed underdose [Unknown]
  - Drug ineffective [Fatal]

NARRATIVE: CASE EVENT DATE: 20210724
